FAERS Safety Report 24379107 (Version 1)
Quarter: 2024Q3

REPORT INFORMATION
  Report Type: Report from Study
  Country: US (occurrence: US)
  Receive Date: 20240930
  Receipt Date: 20240930
  Transmission Date: 20241017
  Serious: Yes (Other)
  Sender: MYLAN
  Company Number: US-MYLANLABS-2024M1087408

PATIENT
  Sex: Female

DRUGS (1)
  1. ISOTRETINOIN [Suspect]
     Active Substance: ISOTRETINOIN
     Indication: Product used for unknown indication
     Dosage: UNK
     Route: 065

REACTIONS (10)
  - Haematochezia [Unknown]
  - Skin lesion [Recovering/Resolving]
  - Muscle spasms [Unknown]
  - Sunburn [Unknown]
  - Somnolence [Unknown]
  - Fatigue [Unknown]
  - Rash erythematous [Recovering/Resolving]
  - Epistaxis [Recovered/Resolved]
  - Lip dry [Unknown]
  - Arthralgia [Unknown]
